FAERS Safety Report 19244179 (Version 5)
Quarter: 2021Q4

REPORT INFORMATION
  Report Type: Report from Study
  Country: DE (occurrence: DE)
  Receive Date: 20210512
  Receipt Date: 20211111
  Transmission Date: 20220304
  Serious: Yes (Hospitalization, Other)
  Sender: FDA-Public Use
  Company Number: DE-SAMSUNG BIOEPIS-SB-2021-11200

PATIENT
  Age: 47 Year
  Sex: Female

DRUGS (3)
  1. HUMIRA [Suspect]
     Active Substance: ADALIMUMAB
     Indication: Product used for unknown indication
     Route: 065
  2. IMRALDI [Suspect]
     Active Substance: ADALIMUMAB
     Indication: Crohn^s disease
     Route: 058
     Dates: start: 20200524, end: 20200524
  3. ENTOCORT [Concomitant]
     Active Substance: BUDESONIDE
     Indication: Product used for unknown indication

REACTIONS (10)
  - Gastric atony [Recovered/Resolved]
  - Intestinal anastomosis complication [Recovered/Resolved]
  - Adrenal insufficiency [Not Recovered/Not Resolved]
  - Post procedural complication [Unknown]
  - Vena cava thrombosis [Unknown]
  - Feeding disorder [Unknown]
  - Ovarian adenoma [Recovered/Resolved]
  - Factor V deficiency [Unknown]
  - Abdominal adhesions [Recovered/Resolved]
  - Post procedural infection [Recovering/Resolving]

NARRATIVE: CASE EVENT DATE: 20210212
